FAERS Safety Report 4803623-0 (Version None)
Quarter: 2005Q4

REPORT INFORMATION
  Report Type: 
  Country: None (occurrence: None)
  Receive Date: 20051014
  Receipt Date: 20050215
  Transmission Date: 20060501
  Serious: Yes (Death)
  Sender: FDA-Public Use
  Company Number: 05P-163-0288522-00

PATIENT
  Age: 43 Year
  Sex: Male

DRUGS (5)
  1. KALETRA [Suspect]
     Indication: HIV INFECTION
     Dosage: ORAL
     Route: 048
     Dates: start: 20030926, end: 20031016
  2. KALETRA [Suspect]
     Indication: HIV INFECTION
     Dosage: ORAL
     Route: 048
     Dates: start: 20031016, end: 20031031
  3. TENOFOVIR [Concomitant]
  4. EMTRICITABINE [Concomitant]
  5. ENFUVIRTIDE [Concomitant]

REACTIONS (1)
  - DEATH [None]
